FAERS Safety Report 11026157 (Version 1)
Quarter: 2015Q2

REPORT INFORMATION
  Report Type: Report from Study
  Country: NL (occurrence: NL)
  Receive Date: 20150414
  Receipt Date: 20150414
  Transmission Date: 20150821
  Serious: Yes (Hospitalization)
  Sender: FDA-Public Use
  Company Number: US-ASTRAZENECA-2015SE34040

PATIENT
  Age: 325 Day
  Sex: Female

DRUGS (6)
  1. ENALAPRIL [Concomitant]
     Active Substance: ENALAPRIL
     Indication: PRODUCT USED FOR UNKNOWN INDICATION
  2. SYNAGIS [Suspect]
     Active Substance: PALIVIZUMAB
     Indication: HEART DISEASE CONGENITAL
     Dosage: 121 MG, 15 MG/KG MONTHLY
     Route: 030
     Dates: start: 20141216, end: 20141216
  3. SYNAGIS [Suspect]
     Active Substance: PALIVIZUMAB
     Indication: HEART DISEASE CONGENITAL
     Dosage: 116 MG, 15 MG/KG MONTHLY
     Route: 030
     Dates: start: 20141111, end: 20141111
  4. SYNAGIS [Suspect]
     Active Substance: PALIVIZUMAB
     Indication: HEART DISEASE CONGENITAL
     Route: 030
  5. SYNAGIS [Suspect]
     Active Substance: PALIVIZUMAB
     Indication: HEART DISEASE CONGENITAL
     Dosage: 128 MG, 15 MG/KG MONTHLY
     Route: 030
     Dates: start: 20150113, end: 20150113
  6. SYNAGIS [Suspect]
     Active Substance: PALIVIZUMAB
     Indication: HEART DISEASE CONGENITAL
     Dosage: 129MG, 15 MG/KG MONTHLY
     Route: 030
     Dates: start: 20150210, end: 20150210

REACTIONS (1)
  - Vomiting [Not Recovered/Not Resolved]

NARRATIVE: CASE EVENT DATE: 20150326
